FAERS Safety Report 6461660-7 (Version None)
Quarter: 2009Q4

REPORT INFORMATION
  Report Type: 
  Country: None (occurrence: None)
  Receive Date: 20091130
  Receipt Date: 20091119
  Transmission Date: 20100525
  Serious: Yes (Other)
  Sender: FDA-Public Use
  Company Number: US-JNJFOC-20091106365

PATIENT
  Sex: Female
  Weight: 59.88 kg

DRUGS (7)
  1. REMICADE [Suspect]
     Route: 042
     Dates: start: 20081201, end: 20091101
  2. REMICADE [Suspect]
     Route: 042
     Dates: start: 20081201, end: 20091101
  3. REMICADE [Suspect]
     Route: 042
     Dates: start: 20081201, end: 20091101
  4. REMICADE [Suspect]
     Route: 042
     Dates: start: 20081201, end: 20091101
  5. REMICADE [Suspect]
     Route: 042
     Dates: start: 20081201, end: 20091101
  6. REMICADE [Suspect]
     Route: 042
     Dates: start: 20081201, end: 20091101
  7. REMICADE [Suspect]
     Indication: COLITIS ULCERATIVE
     Dosage: DOSE ^4 VIALS^
     Route: 042
     Dates: start: 20081201, end: 20091101

REACTIONS (1)
  - CYTOMEGALOVIRUS GASTROINTESTINAL INFECTION [None]
